FAERS Safety Report 20482154 (Version 9)
Quarter: 2022Q4

REPORT INFORMATION
  Report Type: Spontaneous
  Country: JP (occurrence: JP)
  Receive Date: 20220216
  Receipt Date: 20221130
  Transmission Date: 20230113
  Serious: Yes (Death, Other)
  Sender: FDA-Public Use
  Company Number: JP-BRISTOL-MYERS SQUIBB COMPANY-BMS-2022-021821

PATIENT
  Age: 79 Year
  Sex: Male

DRUGS (5)
  1. YERVOY [Suspect]
     Active Substance: IPILIMUMAB
     Indication: Pleural mesothelioma malignant
     Dosage: UNK
     Route: 041
  2. YERVOY [Suspect]
     Active Substance: IPILIMUMAB
     Dosage: UNK, 2 COURSES ADMINISTERED
     Route: 065
  3. YERVOY [Suspect]
     Active Substance: IPILIMUMAB
  4. OPDIVO [Suspect]
     Active Substance: NIVOLUMAB
     Indication: Pleural mesothelioma malignant
     Dosage: UNK, 3 COURSES ADMINISTERED
     Route: 065
  5. OPDIVO [Suspect]
     Active Substance: NIVOLUMAB

REACTIONS (2)
  - Immune-mediated lung disease [Fatal]
  - Immune-mediated hepatic disorder [Recovering/Resolving]
